FAERS Safety Report 9469577 (Version 2)
Quarter: 2013Q3

REPORT INFORMATION
  Report Type: Spontaneous
  Country: JP (occurrence: JP)
  Receive Date: 20130822
  Receipt Date: 20130918
  Transmission Date: 20140515
  Serious: Yes (Other)
  Sender: FDA-Public Use
  Company Number: JP-ROCHE-1263718

PATIENT
  Age: 70 Year
  Sex: Male
  Weight: 61 kg

DRUGS (2)
  1. LUCENTIS [Suspect]
     Indication: AGE-RELATED MACULAR DEGENERATION
     Route: 050
     Dates: start: 20130716, end: 20130716
  2. OFLOXIN [Concomitant]
     Indication: INFECTION PROPHYLAXIS
     Route: 065
     Dates: start: 20130713, end: 20130719

REACTIONS (1)
  - Vitreous opacities [Recovered/Resolved]
